FAERS Safety Report 8602799-7 (Version None)
Quarter: 2012Q3

REPORT INFORMATION
  Report Type: 
  Country: None (occurrence: None)
  Receive Date: 20120817
  Receipt Date: 20120809
  Transmission Date: 20120928
  Serious: Yes (Other)
  Sender: FDA-Public Use
  Company Number: US-BAYER-2011-059198

PATIENT
  Age: 40 Year
  Sex: Female

DRUGS (1)
  1. MIRENA [Suspect]
     Indication: MENORRHAGIA
     Dosage: 20 MCG/24HR, CONT
     Route: 015
     Dates: start: 20110701

REACTIONS (7)
  - DYSMENORRHOEA [None]
  - PELVIC PAIN [None]
  - AMENORRHOEA [None]
  - MENSTRUAL DISORDER [None]
  - HEADACHE [None]
  - VAGINAL HAEMORRHAGE [None]
  - MALAISE [None]
